FAERS Safety Report 14384243 (Version 1)
Quarter: 2018Q1

REPORT INFORMATION
  Report Type: Report from Study
  Country: JP (occurrence: JP)
  Receive Date: 20180115
  Receipt Date: 20180115
  Transmission Date: 20180509
  Serious: Yes (Other)
  Sender: FDA-Public Use
  Company Number: JP-BAYER-2018-006592

PATIENT
  Age: 50 Year
  Sex: Male

DRUGS (2)
  1. LOW DOSE ASPIRIN [Suspect]
     Active Substance: ASPIRIN
     Route: 048
  2. POLIDOCANOL [Concomitant]
     Active Substance: POLIDOCANOL
     Indication: WOUND SECRETION
     Dosage: 1 ML, ONCE
     Route: 061

REACTIONS (2)
  - Gastric ulcer [None]
  - Procedural haemorrhage [None]
